FAERS Safety Report 14186777 (Version 2)
Quarter: 2017Q4

REPORT INFORMATION
  Report Type: Report from Study
  Country: US (occurrence: US)
  Receive Date: 20171114
  Receipt Date: 20171115
  Transmission Date: 20180321
  Serious: No
  Sender: FDA-Public Use
  Company Number: US-GILEAD-2017-0292243

PATIENT
  Age: 65 Year
  Sex: Female
  Weight: 105 kg

DRUGS (27)
  1. ELIQUIS [Concomitant]
     Active Substance: APIXABAN
  2. LOPRESSOR [Concomitant]
     Active Substance: METOPROLOL TARTRATE
  3. AMBRISENTAN [Suspect]
     Active Substance: AMBRISENTAN
     Dosage: 10 MG, QD
     Route: 048
  4. AMBRISENTAN [Suspect]
     Active Substance: AMBRISENTAN
     Indication: PULMONARY HYPERTENSION
     Dosage: 5 MG, QD
     Route: 065
     Dates: start: 201701
  5. COLCHICINE. [Concomitant]
     Active Substance: COLCHICINE
  6. ULORIC [Concomitant]
     Active Substance: FEBUXOSTAT
  7. APRESOLINE HYDROCHLORIDE [Concomitant]
     Active Substance: HYDRALAZINE HYDROCHLORIDE
  8. COENZYME Q10 [Concomitant]
     Active Substance: UBIDECARENONE
  9. ADENOSINE. [Concomitant]
     Active Substance: ADENOSINE
  10. SILDENAFIL CITRATE. [Concomitant]
     Active Substance: SILDENAFIL CITRATE
  11. KRILL OIL [Concomitant]
     Active Substance: DIETARY SUPPLEMENT
  12. PREVACID [Concomitant]
     Active Substance: LANSOPRAZOLE
  13. MULTIVITAMINS                      /00116001/ [Concomitant]
     Active Substance: VITAMINS
  14. METOLAZONE. [Concomitant]
     Active Substance: METOLAZONE
  15. SYNTHROID [Concomitant]
     Active Substance: LEVOTHYROXINE SODIUM
  16. REVATIO [Concomitant]
     Active Substance: SILDENAFIL CITRATE
  17. VENTOLIN HFA [Concomitant]
     Active Substance: ALBUTEROL SULFATE
  18. ASPIRIN                            /00002701/ [Concomitant]
     Active Substance: ASPIRIN
  19. MUCINEX [Concomitant]
     Active Substance: GUAIFENESIN
  20. AMIODARONE [Concomitant]
     Active Substance: AMIODARONE
  21. COLCRYS [Concomitant]
     Active Substance: COLCHICINE
  22. LASIX [Concomitant]
     Active Substance: FUROSEMIDE
  23. ZAROXOLYN [Concomitant]
     Active Substance: METOLAZONE
  24. KLOR-CON [Concomitant]
     Active Substance: POTASSIUM CHLORIDE
  25. PRAVACHOL [Concomitant]
     Active Substance: PRAVASTATIN SODIUM
  26. NEURONTIN [Concomitant]
     Active Substance: GABAPENTIN
  27. PLAQUENIL                          /00072602/ [Concomitant]
     Active Substance: HYDROXYCHLOROQUINE DIPHOSPHATE

REACTIONS (15)
  - Mobility decreased [Not Recovered/Not Resolved]
  - Blood iron decreased [Not Recovered/Not Resolved]
  - Fluid retention [Not Recovered/Not Resolved]
  - Blood potassium decreased [Not Recovered/Not Resolved]
  - Dyspnoea [Not Recovered/Not Resolved]
  - Catheterisation cardiac [Unknown]
  - Normocytic anaemia [Not Recovered/Not Resolved]
  - Oedema peripheral [Not Recovered/Not Resolved]
  - Dyspnoea exertional [Not Recovered/Not Resolved]
  - Cough [Not Recovered/Not Resolved]
  - Weight fluctuation [Unknown]
  - Unevaluable event [Unknown]
  - Dyspnoea [Not Recovered/Not Resolved]
  - Palpitations [Not Recovered/Not Resolved]
  - Haemoglobin decreased [Not Recovered/Not Resolved]

NARRATIVE: CASE EVENT DATE: 201703
